FAERS Safety Report 4662362-X (Version None)
Quarter: 2005Q2

REPORT INFORMATION
  Report Type: 
  Country: None (occurrence: None)
  Receive Date: 20050516
  Receipt Date: 20050502
  Transmission Date: 20051028
  Serious: Yes (Death)
  Sender: FDA-Public Use
  Company Number: US-JNJFOC-20050200195

PATIENT
  Sex: Female
  Weight: 96.62 kg

DRUGS (4)
  1. DURAGESIC-100 [Suspect]
     Route: 062
     Dates: start: 20040802, end: 20040926
  2. PROZAC [Concomitant]
     Indication: BIPOLAR DISORDER
     Route: 049
  3. SEROQUEL [Concomitant]
     Indication: BIPOLAR DISORDER
     Route: 049
  4. KLONOPIN [Concomitant]
     Route: 049

REACTIONS (6)
  - BRAIN OEDEMA [None]
  - DRUG TOXICITY [None]
  - FLUSHING [None]
  - HEADACHE [None]
  - NAUSEA [None]
  - THERAPEUTIC RESPONSE DECREASED [None]
